FAERS Safety Report 6601224-5 (Version None)
Quarter: 2010Q1

REPORT INFORMATION
  Report Type: 
  Country: None (occurrence: None)
  Receive Date: 20100225
  Receipt Date: 20100222
  Transmission Date: 20100710
  Serious: Yes (Hospitalization)
  Sender: FDA-Public Use
  Company Number: FR-SANOFI-AVENTIS-2010SA009988

PATIENT
  Age: 69 Year
  Sex: Male

DRUGS (10)
  1. IXPRIM [Suspect]
     Route: 048
     Dates: start: 20091228, end: 20100101
  2. LASIX [Suspect]
     Indication: DRUG USE FOR UNKNOWN INDICATION
     Route: 048
     Dates: end: 20100101
  3. SKENAN [Suspect]
     Indication: BACK PAIN
     Route: 048
     Dates: start: 20091228, end: 20100101
  4. ALDACTONE [Suspect]
     Indication: DRUG USE FOR UNKNOWN INDICATION
     Dates: end: 20100101
  5. COVERSYL /FRA/ [Suspect]
     Indication: DRUG USE FOR UNKNOWN INDICATION
     Dates: end: 20100101
  6. ESOMEPRAZOLE MAGNESIUM [Concomitant]
     Indication: DRUG USE FOR UNKNOWN INDICATION
  7. PREVISCAN [Concomitant]
     Indication: DRUG USE FOR UNKNOWN INDICATION
  8. CORTANCYL [Concomitant]
     Indication: DRUG USE FOR UNKNOWN INDICATION
     Dates: end: 20100101
  9. ALENDRONIC ACID [Concomitant]
     Indication: DRUG USE FOR UNKNOWN INDICATION
  10. CARDENSIEL [Concomitant]
     Indication: DRUG USE FOR UNKNOWN INDICATION

REACTIONS (1)
  - CONFUSIONAL STATE [None]
